FAERS Safety Report 5136027-4 (Version None)
Quarter: 2006Q4

REPORT INFORMATION
  Report Type: 
  Country: None (occurrence: None)
  Receive Date: 20061020
  Receipt Date: 20061004
  Transmission Date: 20070319
  Serious: Yes (Other)
  Sender: FDA-Public Use
  Company Number: 2006BL005872

PATIENT
  Age: 22 Year
  Sex: Female

DRUGS (3)
  1. PREDNISOLONE SODIUM PHOSPHATE [Suspect]
     Indication: HEART AND LUNG TRANSPLANT
  2. AZATHIOPRINE [Suspect]
     Indication: HEART AND LUNG TRANSPLANT
     Dosage: SEE IMAGE
  3. CICLOSPORIN (CILOSPORIN) [Suspect]
     Indication: HEART AND LUNG TRANSPLANT

REACTIONS (6)
  - BRONCHIECTASIS [None]
  - DRUG EXPOSURE DURING PREGNANCY [None]
  - DRUG LEVEL BELOW THERAPEUTIC [None]
  - LOWER RESPIRATORY TRACT INFECTION [None]
  - PREGNANCY [None]
  - STENOTROPHOMONAS INFECTION [None]
